FAERS Safety Report 25182232 (Version 1)
Quarter: 2025Q2

REPORT INFORMATION
  Report Type: Spontaneous
  Country: US (occurrence: US)
  Receive Date: 20250410
  Receipt Date: 20250410
  Transmission Date: 20250717
  Serious: No
  Sender: KINIKSA PHARMACEUTICALS
  Company Number: US-Kiniksa Pharmaceuticals Ltd.-2024KPU000502

PATIENT
  Sex: Male

DRUGS (3)
  1. ARCALYST [Suspect]
     Active Substance: RILONACEPT
     Indication: Pericarditis
     Route: 058
     Dates: start: 2024, end: 2024
  2. ARCALYST [Suspect]
     Active Substance: RILONACEPT
     Dosage: 1.7 ML
     Route: 058
     Dates: end: 202403
  3. ARCALYST [Suspect]
     Active Substance: RILONACEPT
     Dosage: 2 ML
     Route: 058
     Dates: start: 202404

REACTIONS (3)
  - Underdose [Recovered/Resolved]
  - Pain [Unknown]
  - Pericarditis [Unknown]

NARRATIVE: CASE EVENT DATE: 20240101
